FAERS Safety Report 6839038-3 (Version None)
Quarter: 2010Q3

REPORT INFORMATION
  Report Type: 
  Country: None (occurrence: None)
  Receive Date: 20100714
  Receipt Date: 20100702
  Transmission Date: 20110219
  Serious: Yes (Hospitalization, Other)
  Sender: FDA-Public Use
  Company Number: US-BIOGENIDEC-2009BI004325

PATIENT
  Age: 57 Year
  Sex: Female

DRUGS (2)
  1. TYSABRI [Suspect]
     Indication: MULTIPLE SCLEROSIS
     Route: 042
     Dates: start: 20070611
  2. DEPAKOTE [Concomitant]
     Indication: PETIT MAL EPILEPSY

REACTIONS (5)
  - ABASIA [None]
  - MOBILITY DECREASED [None]
  - OSTEONECROSIS [None]
  - PAIN IN EXTREMITY [None]
  - PETIT MAL EPILEPSY [None]
